FAERS Safety Report 4656713-X (Version None)
Quarter: 2005Q2

REPORT INFORMATION
  Report Type: 
  Country: None (occurrence: None)
  Receive Date: 20050331
  Receipt Date: 20041124
  Transmission Date: 20051028
  Serious: No
  Sender: FDA-Public Use
  Company Number: UK100712

PATIENT
  Age: 28 Year
  Sex: Female

DRUGS (5)
  1. ARANESP [Suspect]
     Indication: ANAEMIA OF MALIGNANT DISEASE
     Dosage: 500 MCG
  2. NEULASTA [Suspect]
     Indication: CHEMOTHERAPY
     Dosage: SC
     Route: 058
  3. DOCETAXEL [Concomitant]
  4. DOXORUBICIN HYDROCHLORIDE [Concomitant]
  5. CYCLOPHOSPHAMIDE [Concomitant]

REACTIONS (1)
  - THROMBOCYTHAEMIA [None]
